FAERS Safety Report 7104778-8 (Version None)
Quarter: 2010Q4

REPORT INFORMATION
  Report Type: 
  Country: None (occurrence: None)
  Receive Date: 20101109
  Receipt Date: 20101022
  Transmission Date: 20110411
  Serious: Yes (Other)
  Sender: FDA-Public Use
  Company Number: ACO_02920_2010

PATIENT
  Age: 57 Year
  Sex: Male

DRUGS (2)
  1. TERNELIN (TERNELIN (TIZANIDINE HYDROCHLORIDE)) 1 DF (NOT SPECIFIED) [Suspect]
     Indication: PRODUCT USED FOR UNKNOWN INDICATION
     Dosage: 2 DF, 1 DF, BID ORAL
     Route: 048
  2. TEGRETOL [Suspect]
     Indication: PRODUCT USED FOR UNKNOWN INDICATION
     Dosage: 100 MG BID ORAL
     Route: 048

REACTIONS (1)
  - MENIERE'S DISEASE [None]
